FAERS Safety Report 13341447 (Version 1)
Quarter: 2017Q1

REPORT INFORMATION
  Report Type: Spontaneous
  Country: AU (occurrence: AU)
  Receive Date: 20170316
  Receipt Date: 20170316
  Transmission Date: 20170428
  Serious: Yes (Hospitalization, Other)
  Sender: FDA-Public Use
  Company Number: AU-EGALET US INC-AU-2017EGA000255

PATIENT
  Age: 68 Year
  Sex: Female

DRUGS (4)
  1. NALOXONE W/OXYCODONE [Suspect]
     Active Substance: NALOXONE HYDROCHLORIDE\OXYCODONE HYDROCHLORIDE
     Indication: BONE PAIN
     Dosage: 60/30 MG TID
  2. OXYCODONE HYDROCHLORIDE. [Suspect]
     Active Substance: OXYCODONE HYDROCHLORIDE
     Dosage: 5 MG, QID
     Route: 065
  3. OXYCODONE HYDROCHLORIDE. [Suspect]
     Active Substance: OXYCODONE HYDROCHLORIDE
     Dosage: 60 MG, TID (SUSTAINED RELEASE)
  4. OXYCODONE HYDROCHLORIDE. [Suspect]
     Active Substance: OXYCODONE HYDROCHLORIDE
     Indication: BONE PAIN
     Dosage: UNK

REACTIONS (6)
  - Toxicity to various agents [Unknown]
  - Overdose [Unknown]
  - Depressed level of consciousness [Unknown]
  - Respiratory rate decreased [Unknown]
  - Hepatic function abnormal [Unknown]
  - Miosis [Unknown]
